FAERS Safety Report 14483223 (Version 2)
Quarter: 2018Q1

REPORT INFORMATION
  Report Type: Spontaneous
  Country: US (occurrence: US)
  Receive Date: 20180204
  Receipt Date: 20180208
  Transmission Date: 20180509
  Serious: No
  Sender: FDA-Public Use
  Company Number: US-JNJFOC-20180126372

PATIENT
  Age: 55 Year
  Sex: Female

DRUGS (2)
  1. CYMBALTA [Concomitant]
     Active Substance: DULOXETINE HYDROCHLORIDE
     Route: 065
  2. STELARA [Suspect]
     Active Substance: USTEKINUMAB
     Indication: CROHN^S DISEASE
     Route: 058

REACTIONS (6)
  - Balance disorder [Unknown]
  - Memory impairment [Unknown]
  - Paraesthesia [Unknown]
  - Gait disturbance [Unknown]
  - Visual impairment [Unknown]
  - Head discomfort [Unknown]

NARRATIVE: CASE EVENT DATE: 20180118
